FAERS Safety Report 18318888 (Version 1)
Quarter: 2020Q3

REPORT INFORMATION
  Report Type: Spontaneous
  Country: IT (occurrence: IT)
  Receive Date: 20200928
  Receipt Date: 20200928
  Transmission Date: 20201103
  Serious: Yes (Other)
  Sender: FDA-Public Use
  Company Number: IT-LUPIN PHARMACEUTICALS INC.-2020-06475

PATIENT
  Age: 60 Year
  Sex: Male

DRUGS (11)
  1. PROCARBAZINE [Suspect]
     Active Substance: PROCARBAZINE
     Indication: HODGKIN^S DISEASE
     Dosage: 100 MILLIGRAM/SQ. METER (RECEIVED ON DAYS 1?7; ACCORDING TO BEACOPP PROTOCOL (AT STANDARD DOSES) ON
     Route: 048
  2. BLEOMYCIN [Suspect]
     Active Substance: BLEOMYCIN SULFATE
     Indication: HODGKIN^S DISEASE
     Dosage: 10 MILLIGRAM/SQ. METER (RECEIVED EVERY DAY 8; ACCORDING TO BEACOPP PROTOCOL (AT STANDARD DOSES).)
     Route: 065
  3. CARBOPLATIN. [Suspect]
     Active Substance: CARBOPLATIN
     Indication: HODGKIN^S DISEASE
     Dosage: 100 MILLIGRAM/SQ. METER DAYS 1?4
     Route: 065
  4. METHYLPREDNISOLONE. [Suspect]
     Active Substance: METHYLPREDNISOLONE
     Indication: HODGKIN^S DISEASE
     Dosage: 400 MILLIGRAM/SQ. METER, 400 MILLIGRAM/SQ. METER (RECEIVED EVERY DAYS 1?5; ACCORDING TO MICMA PROTOC
     Route: 065
  5. VINCRISTINE [Suspect]
     Active Substance: VINCRISTINE
     Indication: HODGKIN^S DISEASE
     Dosage: 1.4 MILLIGRAM/SQ. METER (RECEIVED ON EVERY DAY 8; ACCORDING TO BEACOPP PROTOCOL (AT STANDARD DOSES).
     Route: 065
  6. DOXORUBICIN [Suspect]
     Active Substance: DOXORUBICIN
     Indication: HODGKIN^S DISEASE
     Dosage: 25 MILLIGRAM/SQ. METER, QD 25 MILLIGRAM/SQ. METER (RECEIVED EVERY DAY 1; ACCORDING TO BEACOPP PROTOC
     Route: 065
  7. CYCLOPHOSPHAMIDE. [Suspect]
     Active Substance: CYCLOPHOSPHAMIDE
     Indication: HODGKIN^S DISEASE
     Dosage: 650 MILLIGRAM/SQ. METER, QD 650 MILLIGRAM/SQ. METER (RECEIVED EVERY DAY 1; ACCORDING TO BEACOPP PROT
     Route: 065
  8. PREDNISONE. [Suspect]
     Active Substance: PREDNISONE
     Indication: HODGKIN^S DISEASE
     Dosage: 40 MILLIGRAM/SQ. METER RECEIVED ON DAYS 1?14; ACCORDING TO BEACOPP PROTOCOL (AT STANDARD DOSES).
     Route: 048
  9. CYTOSINE ARABINOSIDE [Suspect]
     Active Substance: CYTARABINE
     Indication: HODGKIN^S DISEASE
     Dosage: 2000 MILLIGRAM/SQ. METER (RECEIVED EVERY DAY 5; ACCORDING TO MICMA PROTOCOL) EVERY DAY 5
     Route: 065
  10. MITOXANTRONE [Suspect]
     Active Substance: MITOXANTRONE HYDROCHLORIDE
     Indication: HODGKIN^S DISEASE
     Dosage: 10 MILLIGRAM/SQ. METER RECEIVED ON DAY 1; ACCORDING TO MICMA PROTOCOL.
     Route: 016
  11. ETOPOSIDE. [Suspect]
     Active Substance: ETOPOSIDE
     Indication: HODGKIN^S DISEASE
     Dosage: 100 MILLIGRAM/SQ. METER 100 MILLIGRAM/SQ. METER (RECEIVED EVERY DAY 1?3; ACCORDING TO BEACOPP PROTOC
     Route: 065

REACTIONS (1)
  - Peyronie^s disease [Recovering/Resolving]
